FAERS Safety Report 5758241-7 (Version None)
Quarter: 2008Q2

REPORT INFORMATION
  Report Type: 
  Country: None (occurrence: None)
  Receive Date: 20080604
  Receipt Date: 20080526
  Transmission Date: 20081010
  Serious: Yes (Death, Hospitalization)
  Sender: FDA-Public Use
  Company Number: FI-KINGPHARMUSA00001-K200800608

PATIENT

DRUGS (1)
  1. PROCANBID [Suspect]
     Indication: ATRIAL FIBRILLATION

REACTIONS (3)
  - ADVERSE EVENT [None]
  - BRUGADA SYNDROME [None]
  - SUDDEN CARDIAC DEATH [None]
